FAERS Safety Report 13486428 (Version 1)
Quarter: 2017Q2

REPORT INFORMATION
  Report Type: Spontaneous
  Country: PL (occurrence: PL)
  Receive Date: 20170426
  Receipt Date: 20170426
  Transmission Date: 20170830
  Serious: Yes (Hospitalization, Other)
  Sender: FDA-Public Use
  Company Number: PL-BAYER-2017-076169

PATIENT
  Age: 31 Year
  Sex: Female
  Weight: 55 kg

DRUGS (3)
  1. DROSPIRENONE + ETHINYLESTRADIOL [Suspect]
     Active Substance: DROSPIRENONE\ETHINYL ESTRADIOL
     Route: 048
  2. ATORVASTATIN [Suspect]
     Active Substance: ATORVASTATIN
     Dosage: 80 MG/24HR, UNK
  3. PANTOPRAZOLE [Suspect]
     Active Substance: PANTOPRAZOLE
     Dosage: 20 MG/24HR, UNK

REACTIONS (3)
  - Chest pain [Recovered/Resolved]
  - Embolism [None]
  - Acute myocardial infarction [Recovered/Resolved]
